FAERS Safety Report 7406769 (Version 23)
Quarter: 2012Q4

REPORT INFORMATION
  Report Type: 
  Country: CA (occurrence: CA)
  Receive Date: 20100602
  Receipt Date: 20121109
  Transmission Date: 20130627
  Serious: Yes (Death, Hospitalization, Other)
  Sender: FDA-Public Use
  Company Number: PHHY2009CA37317

PATIENT
  Sex: Male

DRUGS (7)
  1. SANDOSTATIN LAR [Suspect]
     Indication: CARCINOID TUMOUR
     Dosage: 60 mg, BIW
     Route: 030
     Dates: start: 20070402
  2. SANDOSTATIN LAR [Suspect]
     Dosage: 60 mg, every 4 weeks
     Route: 030
  3. SANDOSTATIN LAR [Suspect]
     Dosage: 60 mg, BIW
     Route: 030
  4. SANDOSTATIN LAR [Suspect]
     Dosage: 60 mg, QMO
     Route: 030
  5. SANDOSTATIN LAR [Suspect]
     Dosage: 60 mg, QW2
     Route: 030
  6. SANDOSTATIN LAR [Suspect]
     Dosage: 60 mg, every 2 weeks
     Route: 030
     Dates: end: 20110926
  7. ANTIBIOTICS [Concomitant]

REACTIONS (29)
  - Toothache [Unknown]
  - Flushing [Not Recovered/Not Resolved]
  - Joint swelling [Unknown]
  - Musculoskeletal pain [Unknown]
  - Pain [Unknown]
  - Oropharyngeal pain [Unknown]
  - Dysphagia [Unknown]
  - Fall [Unknown]
  - Hypoaesthesia [Unknown]
  - Underweight [Unknown]
  - Arthritis [Unknown]
  - Dizziness [Unknown]
  - Asthenia [Unknown]
  - Fatigue [Unknown]
  - Death [Fatal]
  - Blood pressure increased [Unknown]
  - Lung neoplasm [Unknown]
  - Tracheal neoplasm [Unknown]
  - Mass [Unknown]
  - Urinary tract infection [Unknown]
  - Pneumothorax [Unknown]
  - Dyspnoea [Unknown]
  - Dysuria [Unknown]
  - Nephrolithiasis [Unknown]
  - Groin pain [Unknown]
  - Blood urine present [Unknown]
  - Dehydration [Unknown]
  - Infection [Unknown]
  - Bile duct stone [Unknown]
